FAERS Safety Report 8341964-3 (Version None)
Quarter: 2012Q2

REPORT INFORMATION
  Report Type: 
  Country: None (occurrence: None)
  Receive Date: 20120503
  Receipt Date: 20120417
  Transmission Date: 20120825
  Serious: Yes (Hospitalization)
  Sender: FDA-Public Use
  Company Number: JPI-P-020067

PATIENT
  Age: 32 Year
  Sex: Male

DRUGS (10)
  1. EMTRICITABINE/TENOFOVIR DISOPROXIL FUMARATE [Concomitant]
  2. XYREM [Suspect]
     Indication: NARCOLEPSY
     Dosage: 9 GM (4.5 GM, 2 IN 1 D), ORAL
     Route: 048
     Dates: start: 20111019
  3. NEVIRAPINE [Concomitant]
  4. VALACYCLOVIR [Concomitant]
  5. L-METHYLFOLATE/METHYLCOBALAMIN/N-ACETYLCYSTEINE [Concomitant]
  6. RAMELTEON [Concomitant]
  7. KLONOPIN [Concomitant]
  8. BUPROPION HYDROCHLORIDE [Concomitant]
  9. RALTEGRAVIR [Concomitant]
  10. ILOPERIDONE [Concomitant]

REACTIONS (4)
  - CYTOMEGALOVIRUS INFECTION [None]
  - HAEMATOCHEZIA [None]
  - GASTROINTESTINAL INFECTION [None]
  - LARGE INTESTINAL ULCER [None]
